FAERS Safety Report 14753477 (Version 1)
Quarter: 2018Q2

REPORT INFORMATION
  Report Type: Spontaneous
  Country: IT (occurrence: IT)
  Receive Date: 20180412
  Receipt Date: 20180412
  Transmission Date: 20180711
  Serious: Yes (Other)
  Sender: FDA-Public Use
  Company Number: IT-MYLANLABS-2018M1022883

PATIENT
  Age: 21 Year
  Sex: Male

DRUGS (1)
  1. KLACID 500 MG COMPRESSE RIVESTITE [Suspect]
     Active Substance: CLARITHROMYCIN
     Indication: INFECTION SUSCEPTIBILITY INCREASED
     Dosage: 500 MG, TOTAL
     Route: 048
     Dates: start: 20180214, end: 20180214

REACTIONS (2)
  - Abdominal pain [Recovered/Resolved]
  - Drug intolerance [Recovered/Resolved]

NARRATIVE: CASE EVENT DATE: 20180215
